FAERS Safety Report 7806287-7 (Version None)
Quarter: 2011Q4

REPORT INFORMATION
  Report Type: 
  Country: None (occurrence: None)
  Receive Date: 20111011
  Receipt Date: 20111006
  Transmission Date: 20120403
  Serious: Yes (Other)
  Sender: FDA-Public Use
  Company Number: US-PFIZER INC-2011129795

PATIENT
  Sex: Female

DRUGS (5)
  1. DIOVAN [Concomitant]
     Indication: HYPERTENSION
     Dosage: UNK
     Dates: start: 20070101
  2. CHANTIX [Suspect]
     Indication: SMOKING CESSATION THERAPY
     Dosage: UNK
     Dates: start: 20090301, end: 20090601
  3. PROZAC [Concomitant]
     Indication: DEPRESSION
     Dosage: UNK
     Dates: start: 20060101
  4. SEROQUEL [Concomitant]
     Indication: MOOD SWINGS
     Dosage: UNK
     Dates: start: 20070101
  5. TRAZODONE [Concomitant]
     Indication: MOOD SWINGS
     Dosage: UNK
     Dates: start: 20080101

REACTIONS (4)
  - BIPOLAR DISORDER [None]
  - ANXIETY [None]
  - DEPRESSION [None]
  - AGGRESSION [None]
